FAERS Safety Report 9511143 (Version 4)
Quarter: 2013Q4

REPORT INFORMATION
  Report Type: Spontaneous
  Country: US (occurrence: None)
  Receive Date: 20130905
  Receipt Date: 20131021
  Transmission Date: 20140711
  Serious: Yes (Hospitalization, Other)
  Sender: FDA-Public Use
  Company Number: 2012-003262

PATIENT
  Age: 59 Year
  Sex: Female
  Weight: 69.8 kg

DRUGS (44)
  1. ACTONEL [Suspect]
     Indication: OSTEOPENIA
     Route: 048
     Dates: start: 200211, end: 2007
  2. ACTONEL [Suspect]
     Indication: OSTEOPOROSIS
     Route: 048
     Dates: start: 200211, end: 2007
  3. ACTONEL [Suspect]
     Indication: OSTEOPOROSIS
     Route: 048
     Dates: start: 200104, end: 200210
  4. BONIVA (IBANDRONATE SODIUM) [Suspect]
     Indication: OSTEOPOROSIS
     Route: 048
     Dates: start: 200703
  5. BONIVA (IBANDRONATE SODIUM) [Suspect]
     Indication: OSTEOPENIA
     Route: 048
     Dates: start: 200703
  6. FOSAMAX [Suspect]
     Indication: OSTEOPOROSIS
  7. FOSAMAX [Suspect]
     Indication: OSTEOPENIA
  8. FOSAMAX D [Suspect]
     Indication: OSTEOPOROSIS
  9. FOSAMAX D [Suspect]
     Indication: OSTEOPENIA
  10. ALENDRONATE SODIUM (ALENDRONATE SODIUM) (ALENDRONATE SODIUM) [Suspect]
     Indication: OSTEOPOROSIS
  11. ALENDRONATE SODIUM (ALENDRONATE SODIUM) (ALENDRONATE SODIUM) [Suspect]
     Indication: OSTEOPENIA
  12. IBANDRONATE SODIUM [Suspect]
     Indication: OSTEOPOROSIS
  13. RISEDRONATE SODIUM [Suspect]
     Indication: OSTEOPOROSIS
     Route: 048
  14. ASPIRIN (ACETYLSALICYLIC ACID) [Concomitant]
  15. ATENOLOL (ATENOLOL) [Concomitant]
  16. VYTORIN (EZETIMIBE, SIMVASTATIN) [Concomitant]
  17. LIPITOR (ATORVASTATIN CALCIUM) [Concomitant]
  18. PROTONIX (PANTOPRAZOLE SODIUM SESQUIHYDRATE) [Concomitant]
  19. NEXIUM [Concomitant]
  20. CELEXA /00582602/ (CITALOPRAM HYDROBROMIDE) [Concomitant]
  21. CALTRATE /00751519/ (CALCIUM CARBONATE) [Concomitant]
  22. ESTRATEST (ESTROGENS ESTERFIED, METHYL TESTOTERONE) [Concomitant]
  23. NAPROXEN (NAPROXEN) [Concomitant]
  24. CYCLOBENZAPRINE (CYCLOBENZAPRINE) [Concomitant]
  25. CEPHALEXIN /00145501/ (CEFALEXIN) [Concomitant]
  26. CEFUROXIME AXETIL (CEFUROXIME AXETIL) [Concomitant]
  27. ZITHROMAX (AZITHROMYCIN) [Concomitant]
  28. BIAXIN XL (CLARITHROMYCIN) [Concomitant]
  29. LEVAQUIN (LEVOFLOXACIN) [Concomitant]
  30. DIPHENHYDRAMINE, COMBINATIONS [Concomitant]
  31. ALLEGRA [Concomitant]
  32. NASONEX (MOMETASONE FUROATE) [Concomitant]
  33. HYDROCODONE/GUAIFENESIN (GUAIFENESIN, HYDROCODONE BITARTRATE) [Concomitant]
  34. PROCHLOR (PROCHLORPERAZINE MALEATE) [Concomitant]
  35. TEMAZEPAM (TEMAZEPAM) [Concomitant]
  36. AMBIEN (ZOLPIDEM TARTRATE) [Concomitant]
  37. RESTASIS (CICLOSPORIN) [Concomitant]
  38. TOBRADEX (DEXAMETHASONE, TOBRAMYCIN) [Concomitant]
  39. VOLTAREN /00372301/ (DICLOFENAC) [Concomitant]
  40. FML S.O.P. (FLUOROMETHOLONE) [Concomitant]
  41. CUTIVATE (FLUTICASONE PROPIONATE) [Concomitant]
  42. NULYTELY (MACROGOL, POTASSIUM CHLORIDE, SODIUM BICARBONATE) [Concomitant]
  43. PROTOCORT 100028601/ (HYDROCORTISONE) [Concomitant]
  44. PROCTOSOL HC (HYDROCORTISONE ACETATE) [Concomitant]

REACTIONS (37)
  - Atypical femur fracture [None]
  - Fall [None]
  - Femur fracture [None]
  - Fracture displacement [None]
  - Muscular weakness [None]
  - Stress fracture [None]
  - Skeletal injury [None]
  - Low turnover osteopathy [None]
  - Pain [None]
  - Nausea [None]
  - Dyspepsia [None]
  - Eructation [None]
  - Abdominal pain upper [None]
  - Intervertebral disc degeneration [None]
  - Scoliosis [None]
  - Osteoporosis [None]
  - Bursitis [None]
  - Balance disorder [None]
  - Depression [None]
  - Insomnia [None]
  - Xerophthalmia [None]
  - Osteoarthritis [None]
  - Carpal tunnel syndrome [None]
  - Oral candidiasis [None]
  - Diverticulitis [None]
  - Temporomandibular joint syndrome [None]
  - Eustachian tube dysfunction [None]
  - Vertigo positional [None]
  - Vitamin D deficiency [None]
  - Atrial flutter [None]
  - Myalgia [None]
  - Arthralgia [None]
  - Panic attack [None]
  - Anaemia postoperative [None]
  - Deafness unilateral [None]
  - Gingival operation [None]
  - Rotator cuff syndrome [None]
